FAERS Safety Report 25152834 (Version 1)
Quarter: 2025Q2

REPORT INFORMATION
  Report Type: Spontaneous
  Country: US (occurrence: US)
  Receive Date: 20250403
  Receipt Date: 20250403
  Transmission Date: 20250716
  Serious: Yes (Hospitalization, Other)
  Sender: NOVO NORDISK
  Company Number: US-NOVOPROD-1397917

PATIENT
  Age: 47 Year
  Sex: Female

DRUGS (6)
  1. LEVEMIR [Suspect]
     Active Substance: INSULIN DETEMIR
     Indication: Type 2 diabetes mellitus
     Dosage: 80 IU, QD
     Route: 058
     Dates: start: 20140101, end: 20170101
  2. OZEMPIC [Suspect]
     Active Substance: SEMAGLUTIDE
     Indication: Product used for unknown indication
     Route: 058
     Dates: start: 20220101, end: 20220129
  3. NOVOLOG [Concomitant]
     Active Substance: INSULIN ASPART
     Indication: Product used for unknown indication
     Route: 058
     Dates: start: 20150101
  4. LANTUS SOLOSTAR [Concomitant]
     Active Substance: INSULIN GLARGINE
     Indication: Product used for unknown indication
     Dosage: 70 IU, QD
     Route: 058
     Dates: start: 20170101
  5. TRULICITY [Concomitant]
     Active Substance: DULAGLUTIDE
     Indication: Product used for unknown indication
     Dosage: 4 MG, QW
     Route: 058
     Dates: start: 20220205
  6. GABAPENTIN [Concomitant]
     Active Substance: GABAPENTIN
     Indication: Neuropathy peripheral
     Route: 048
     Dates: start: 20250104

REACTIONS (10)
  - Eye operation [Not Recovered/Not Resolved]
  - Blindness unilateral [Not Recovered/Not Resolved]
  - Eye operation [Not Recovered/Not Resolved]
  - Intraocular pressure test [Not Recovered/Not Resolved]
  - Cataract [Not Recovered/Not Resolved]
  - Epilepsy [Not Recovered/Not Resolved]
  - Eye pain [Not Recovered/Not Resolved]
  - Condition aggravated [Not Recovered/Not Resolved]
  - Weight increased [Unknown]
  - Wrong technique in product usage process [Recovered/Resolved]

NARRATIVE: CASE EVENT DATE: 20140101
